FAERS Safety Report 15046536 (Version 9)
Quarter: 2021Q2

REPORT INFORMATION
  Report Type: Spontaneous
  Country: IL (occurrence: IL)
  Receive Date: 20180621
  Receipt Date: 20210427
  Transmission Date: 20210716
  Serious: Yes (Hospitalization, Other)
  Sender: FDA-Public Use
  Company Number: IL-BIOMARINAP-IL-2018-118680

PATIENT
  Age: 40 Year
  Sex: Female

DRUGS (1)
  1. VIMIZIM [Suspect]
     Active Substance: ELOSULFASE ALFA
     Indication: MUCOPOLYSACCHARIDOSIS IV
     Dosage: UNK, QW
     Route: 042
     Dates: start: 20160505

REACTIONS (8)
  - Seronegative arthritis [Recovered/Resolved]
  - Polyarthritis [Recovering/Resolving]
  - Arthralgia [Recovered/Resolved]
  - Musculoskeletal stiffness [Recovering/Resolving]
  - Pain [Not Recovered/Not Resolved]
  - Joint range of motion decreased [Recovering/Resolving]
  - Pyrexia [Recovered/Resolved]
  - Sleep disorder [Not Recovered/Not Resolved]
